FAERS Safety Report 15567799 (Version 2)
Quarter: 2018Q4

REPORT INFORMATION
  Report Type: Report from Study
  Country: DE (occurrence: DE)
  Receive Date: 20181030
  Receipt Date: 20181102
  Transmission Date: 20190205
  Serious: Yes (Death, Hospitalization, Other)
  Sender: FDA-Public Use
  Company Number: DE-EISAI MEDICAL RESEARCH-EC-2016-022029

PATIENT
  Age: 54 Year
  Sex: Female
  Weight: 89 kg

DRUGS (2)
  1. HALAVEN [Suspect]
     Active Substance: ERIBULIN MESYLATE
     Indication: BREAST CANCER METASTATIC
     Route: 041
     Dates: start: 20161013, end: 20161215
  2. NEULASTA [Suspect]
     Active Substance: PEGFILGRASTIM
     Indication: PROPHYLAXIS
     Route: 058
     Dates: start: 20161014, end: 20161124

REACTIONS (6)
  - Cardiovascular disorder [Recovered/Resolved]
  - Injection site pain [Unknown]
  - Peripheral motor neuropathy [Not Recovered/Not Resolved]
  - Acute respiratory failure [Fatal]
  - Hypocalcaemia [Recovered/Resolved]
  - Facet joint block [Recovered/Resolved]

NARRATIVE: CASE EVENT DATE: 20161014
